FAERS Safety Report 6252590-4 (Version None)
Quarter: 2009Q3

REPORT INFORMATION
  Report Type: 
  Country: None (occurrence: None)
  Receive Date: 20090701
  Receipt Date: 20090622
  Transmission Date: 20100115
  Serious: Yes (Hospitalization, Disabling, Other)
  Sender: FDA-Public Use
  Company Number: US-ELI_LILLY_AND_COMPANY-US200906005099

PATIENT
  Age: 85 Year
  Sex: Female

DRUGS (7)
  1. FORTEO [Suspect]
     Indication: OSTEOPOROSIS
  2. LIPITOR [Concomitant]
  3. SYNTHROID [Concomitant]
  4. LISINOPRIL [Concomitant]
  5. COUMADIN [Concomitant]
  6. VITAMINS NOS [Concomitant]
  7. BETA BLOCKING AGENTS [Concomitant]

REACTIONS (5)
  - CATARACT [None]
  - CEREBROVASCULAR ACCIDENT [None]
  - MELANOCYTIC NAEVUS [None]
  - MUSCULOSKELETAL DISORDER [None]
  - SKIN CANCER [None]
